FAERS Safety Report 6503085-1 (Version None)
Quarter: 2009Q4

REPORT INFORMATION
  Report Type: 
  Country: None (occurrence: None)
  Receive Date: 20091217
  Receipt Date: 20091207
  Transmission Date: 20100525
  Serious: Yes (Other)
  Sender: FDA-Public Use
  Company Number: PHHY2009GB02220

PATIENT
  Sex: Male
  Weight: 70 kg

DRUGS (5)
  1. EXJADE [Suspect]
     Indication: IRON OVERLOAD
     Dosage: 1500 MG/DAY
     Dates: start: 20090104
  2. EXJADE [Suspect]
     Dosage: 500 MG/DAY
     Dates: start: 20060601
  3. EXJADE [Suspect]
     Dosage: 1500 MG/DAY
     Dates: end: 20090901
  4. TRANSFUSIONS [Concomitant]
     Dosage: UNK
     Dates: start: 20090601, end: 20090809
  5. FOLIC ACID [Concomitant]
     Indication: HAEMOLYSIS
     Dosage: 5 MG/DAY
     Route: 048

REACTIONS (7)
  - ANAEMIA [None]
  - BLOOD BILIRUBIN INCREASED [None]
  - BLOOD LACTATE DEHYDROGENASE INCREASED [None]
  - PANIC ATTACK [None]
  - RETICULOCYTE COUNT INCREASED [None]
  - SLEEP APNOEA SYNDROME [None]
  - SLEEP DISORDER [None]
